FAERS Safety Report 8587527-6 (Version None)
Quarter: 2012Q3

REPORT INFORMATION
  Report Type: 
  Country: None (occurrence: None)
  Receive Date: 20120810
  Receipt Date: 20120806
  Transmission Date: 20120928
  Serious: Yes (Other)
  Sender: FDA-Public Use
  Company Number: FR-ABBOTT-12P-056-0960234-00

PATIENT
  Sex: Female
  Weight: 51 kg

DRUGS (3)
  1. KLIPAL CODEINE [Concomitant]
     Indication: PAIN
  2. HUMIRA [Suspect]
     Indication: CROHN'S DISEASE
     Route: 058
     Dates: start: 20120201
  3. BION [Concomitant]
     Indication: PRODUCT USED FOR UNKNOWN INDICATION

REACTIONS (3)
  - ABDOMINAL PAIN [None]
  - ERYTHEMA [None]
  - OEDEMA [None]
